FAERS Safety Report 25971353 (Version 1)
Quarter: 2025Q4

REPORT INFORMATION
  Report Type: Spontaneous
  Country: CA (occurrence: CA)
  Receive Date: 20251028
  Receipt Date: 20251028
  Transmission Date: 20260117
  Serious: Yes (Death, Life-Threatening, Hospitalization, Disabling, Congenital Anomaly, Other)
  Sender: ABBVIE
  Company Number: CA-ABBVIE-6520459

PATIENT
  Age: 43 Year
  Sex: Female
  Weight: 68 kg

DRUGS (26)
  1. HUMIRA [Suspect]
     Active Substance: ADALIMUMAB
     Indication: Rheumatoid arthritis
     Dosage: DOSE FORM: SOLUTION SUBCUTANEOUS
     Route: 058
  2. PANTOPRAZOLE SODIUM ANHYDROUS [Concomitant]
     Active Substance: PANTOPRAZOLE SODIUM ANHYDROUS
     Indication: Product used for unknown indication
     Route: 065
  3. RISEDRONATE SODIUM [Concomitant]
     Active Substance: RISEDRONATE SODIUM
     Indication: Product used for unknown indication
     Route: 065
  4. ERGOCALCIFEROL [Concomitant]
     Active Substance: ERGOCALCIFEROL
     Indication: Product used for unknown indication
     Route: 065
  5. ELBASVIR [Concomitant]
     Active Substance: ELBASVIR
     Indication: Product used for unknown indication
     Route: 065
  6. SULFASALAZINE [Concomitant]
     Active Substance: SULFASALAZINE
     Indication: Product used for unknown indication
     Route: 065
  7. CAFFEINE [Concomitant]
     Active Substance: CAFFEINE
     Indication: Product used for unknown indication
     Route: 065
  8. QUETIAPINE FUMARATE [Concomitant]
     Active Substance: QUETIAPINE FUMARATE
     Indication: Product used for unknown indication
     Route: 065
  9. LORAZEPAM [Concomitant]
     Active Substance: LORAZEPAM
     Indication: Product used for unknown indication
     Route: 065
  10. PANTOPRAZOLE SODIUM [Concomitant]
     Active Substance: PANTOPRAZOLE SODIUM
     Indication: Product used for unknown indication
     Route: 065
  11. PIROXICAM [Concomitant]
     Active Substance: PIROXICAM
     Indication: Product used for unknown indication
     Route: 065
  12. FISH OIL [Concomitant]
     Active Substance: FISH OIL
     Indication: Product used for unknown indication
     Route: 065
  13. PREDNISOLONE [Concomitant]
     Active Substance: PREDNISOLONE
     Indication: Product used for unknown indication
     Route: 065
  14. MAGNESIUM [Concomitant]
     Active Substance: MAGNESIUM
     Indication: Product used for unknown indication
     Route: 065
  15. RAMIPRIL [Concomitant]
     Active Substance: RAMIPRIL
     Indication: Product used for unknown indication
     Route: 065
  16. LEVOTHYROXINE SODIUM [Concomitant]
     Active Substance: LEVOTHYROXINE SODIUM
     Indication: Product used for unknown indication
     Route: 065
  17. GLUCOSAMINE [Concomitant]
     Active Substance: GLUCOSAMINE
     Indication: Product used for unknown indication
     Route: 065
  18. CALCIUM GLUBIONATE [Concomitant]
     Active Substance: CALCIUM GLUBIONATE
     Indication: Product used for unknown indication
     Route: 065
  19. LISINOPRIL [Concomitant]
     Active Substance: LISINOPRIL
     Indication: Product used for unknown indication
     Route: 065
  20. CYANOCOBALAMIN [Concomitant]
     Active Substance: CYANOCOBALAMIN
     Indication: Product used for unknown indication
     Route: 065
  21. IBUPROFEN [Concomitant]
     Active Substance: IBUPROFEN
     Indication: Product used for unknown indication
     Route: 065
  22. ATIVAN [Concomitant]
     Active Substance: LORAZEPAM
     Indication: Anxiety
     Route: 065
  23. MELOXICAM [Concomitant]
     Active Substance: MELOXICAM
     Indication: Product used for unknown indication
     Route: 065
  24. LANSOPRAZOLE [Concomitant]
     Active Substance: LANSOPRAZOLE
     Indication: Product used for unknown indication
     Dosage: DOSE FORM: DELAYED RELEASE
     Route: 065
  25. CHOLECALCIFEROL [Concomitant]
     Active Substance: CHOLECALCIFEROL
     Indication: Product used for unknown indication
     Route: 065
  26. VITAMIN D3 [Concomitant]
     Active Substance: CHOLECALCIFEROL
     Indication: Product used for unknown indication
     Route: 065

REACTIONS (68)
  - Liver injury [Fatal]
  - Musculoskeletal stiffness [Fatal]
  - Hypoaesthesia [Fatal]
  - Rash [Fatal]
  - Muscle injury [Fatal]
  - Nasopharyngitis [Fatal]
  - Type 2 diabetes mellitus [Fatal]
  - Swollen joint count increased [Fatal]
  - Psoriatic arthropathy [Fatal]
  - Product use issue [Fatal]
  - Malaise [Fatal]
  - Decreased appetite [Fatal]
  - Ulcer haemorrhage [Fatal]
  - Abdominal discomfort [Fatal]
  - Anxiety [Fatal]
  - Autoimmune disorder [Fatal]
  - Blister [Fatal]
  - C-reactive protein [Fatal]
  - Fatigue [Fatal]
  - Abdominal pain upper [Fatal]
  - Alopecia [Fatal]
  - Arthralgia [Fatal]
  - Asthma [Fatal]
  - Blood cholesterol increased [Fatal]
  - Deep vein thrombosis postoperative [Fatal]
  - Live birth [Unknown]
  - Asthenia [Fatal]
  - Chest pain [Fatal]
  - Lower limb fracture [Fatal]
  - Osteoarthritis [Fatal]
  - C-reactive protein abnormal [Fatal]
  - Anti-cyclic citrullinated peptide antibody positive [Fatal]
  - Pain [Fatal]
  - Lower respiratory tract infection [Fatal]
  - Pruritus [Fatal]
  - Joint swelling [Fatal]
  - Prescribed overdose [Fatal]
  - Liver disorder [Fatal]
  - Pericarditis [Fatal]
  - Therapeutic response decreased [Fatal]
  - Pemphigus [Fatal]
  - Drug ineffective [Fatal]
  - Maternal exposure during pregnancy [Unknown]
  - Nausea [Fatal]
  - Infusion related reaction [Fatal]
  - Off label use [Fatal]
  - Sinusitis [Fatal]
  - Mobility decreased [Fatal]
  - Lupus vulgaris [Fatal]
  - Rheumatoid factor positive [Fatal]
  - Swelling [Fatal]
  - Synovitis [Fatal]
  - Peripheral swelling [Fatal]
  - Gait inability [Fatal]
  - Injury [Fatal]
  - Hypertension [Fatal]
  - Leukopenia [Fatal]
  - Therapeutic product effect decreased [Fatal]
  - Hypertransaminasaemia [Fatal]
  - Sciatica [Fatal]
  - Drug hypersensitivity [Fatal]
  - Rheumatic fever [Fatal]
  - Hypersensitivity [Fatal]
  - Therapy non-responder [Fatal]
  - Treatment failure [Fatal]
  - Irritable bowel syndrome [Fatal]
  - Oedema [Fatal]
  - Product use in unapproved indication [Fatal]
